FAERS Safety Report 13439417 (Version 1)
Quarter: 2017Q2

REPORT INFORMATION
  Report Type: Spontaneous
  Country: US (occurrence: US)
  Receive Date: 20170413
  Receipt Date: 20170413
  Transmission Date: 20170830
  Serious: No
  Sender: FDA-Public Use
  Company Number: US-SHIRE-US201706291

PATIENT
  Sex: Female
  Weight: 67.12 kg

DRUGS (4)
  1. LEXAPRO [Concomitant]
     Active Substance: ESCITALOPRAM OXALATE
     Indication: DEPRESSION
  2. VYVANSE [Suspect]
     Active Substance: LISDEXAMFETAMINE DIMESYLATE
     Indication: ATTENTION DEFICIT/HYPERACTIVITY DISORDER
     Dosage: 70 MG, 1X/DAY:QD
     Route: 048
     Dates: start: 2011
  3. LEXAPRO [Concomitant]
     Active Substance: ESCITALOPRAM OXALATE
     Indication: ANXIETY
     Dosage: 5 MG, 1X/DAY:QD
     Route: 048
     Dates: start: 2016
  4. ABILIFY [Concomitant]
     Active Substance: ARIPIPRAZOLE
     Indication: INSOMNIA
     Dosage: 2 MG, 1X/DAY:QD
     Route: 048
     Dates: start: 2016

REACTIONS (3)
  - Negativism [Not Recovered/Not Resolved]
  - Disruptive mood dysregulation disorder [Not Recovered/Not Resolved]
  - Insomnia [Not Recovered/Not Resolved]

NARRATIVE: CASE EVENT DATE: 2015
